FAERS Safety Report 7803858-9 (Version None)
Quarter: 2011Q4

REPORT INFORMATION
  Report Type: 
  Country: None (occurrence: None)
  Receive Date: 20111010
  Receipt Date: 20111005
  Transmission Date: 20120403
  Serious: Yes (Other)
  Sender: FDA-Public Use
  Company Number: NL-PFIZER INC-2011238309

PATIENT
  Age: 70 Year
  Sex: Male
  Weight: 90 kg

DRUGS (5)
  1. DILTIAZEM HCL [Concomitant]
     Dosage: 200 MG, 1X/DAY
  2. LIPITOR [Suspect]
     Indication: HYPERCHOLESTEROLAEMIA
     Dosage: 20 MG, 1X/DAY
     Dates: start: 20030130, end: 20110101
  3. TAMSULOSIN HYDROCHLORIDE [Concomitant]
     Dosage: 0.4 MG, 1X/DAY
  4. DIOVAN [Concomitant]
     Dosage: 80 MG, 1X/DAY
  5. CARBASALATE CALCIUM [Concomitant]
     Dosage: 100 MG, 1X/DAY

REACTIONS (1)
  - URINARY RETENTION [None]
